FAERS Safety Report 9146107 (Version 1)
Quarter: 2013Q1

REPORT INFORMATION
  Report Type: Spontaneous
  Country: US (occurrence: None)
  Receive Date: 20130227
  Receipt Date: 20130227
  Transmission Date: 20140127
  Serious: No
  Sender: FDA-Public Use
  Company Number: None

PATIENT
  Age: 62 Year
  Sex: Female
  Weight: 78.47 kg

DRUGS (1)
  1. OMNITROPE [Suspect]
     Dosage: INJEC SUBCUTANEOUSLY 0.4MG 7 DAYS PER
     Route: 058
     Dates: start: 20110913

REACTIONS (3)
  - Muscle spasms [None]
  - Local swelling [None]
  - Local swelling [None]
